FAERS Safety Report 8516745-8 (Version None)
Quarter: 2012Q2

REPORT INFORMATION
  Report Type: 
  Country: None (occurrence: None)
  Receive Date: 20120406
  Receipt Date: 20101220
  Transmission Date: 20120825
  Serious: Yes (Other)
  Sender: FDA-Public Use
  Company Number: PHHY2010US72803

PATIENT
  Age: 55 Year
  Sex: Female
  Weight: 129 kg

DRUGS (1)
  1. TASIGNA [Suspect]
     Indication: CHRONIC MYELOID LEUKAEMIA
     Dosage: 300 MG, BID, ORAL
     Route: 048
     Dates: start: 20100823, end: 20100913

REACTIONS (8)
  - CONTUSION [None]
  - DRUG INEFFECTIVE [None]
  - THROMBOCYTOPENIA [None]
  - PANCYTOPENIA [None]
  - ANAEMIA [None]
  - LYMPHOCYTE COUNT INCREASED [None]
  - LEUKOPENIA [None]
  - NEUTROPENIA [None]
